FAERS Safety Report 10654229 (Version 14)
Quarter: 2015Q2

REPORT INFORMATION
  Report Type: Spontaneous
  Country: US (occurrence: US)
  Receive Date: 20141216
  Receipt Date: 20150504
  Transmission Date: 20150821
  Serious: Yes (Hospitalization, Other)
  Sender: FDA-Public Use
  Company Number: US-UNITED THERAPEUTICS-UNT-2014-009602

PATIENT
  Age: 53 Year
  Sex: Female
  Weight: 68.27 kg

DRUGS (11)
  1. REMODULIN [Suspect]
     Active Substance: TREPROSTINIL
     Indication: PULMONARY ARTERIAL HYPERTENSION
     Dosage: 0.015 ?G/KG, CONTINUING
     Route: 058
  2. REMODULIN [Suspect]
     Active Substance: TREPROSTINIL
     Dosage: 0.037 ?G/KG, CONTINUING
     Route: 058
  3. WARFARIN [Concomitant]
     Active Substance: WARFARIN
     Indication: PRODUCT USED FOR UNKNOWN INDICATION
  4. REMODULIN [Suspect]
     Active Substance: TREPROSTINIL
     Indication: PULMONARY HYPERTENSION
     Dosage: 0.00875 ?G/KG, CONTINUING
     Route: 058
     Dates: start: 20140919
  5. REMODULIN [Suspect]
     Active Substance: TREPROSTINIL
     Dosage: 0.0235 ?G/KG, CONTINUING
     Route: 058
  6. REMODULIN [Suspect]
     Active Substance: TREPROSTINIL
     Dosage: 0.028 ?G/KG, CONTINUING
     Route: 058
  7. REMODULIN [Suspect]
     Active Substance: TREPROSTINIL
     Dosage: 0.06275 ?G/KG, CONTINUING
     Route: 058
  8. REMODULIN [Suspect]
     Active Substance: TREPROSTINIL
     Dosage: 0.0605 ?G/KG, CONTINUING
     Route: 058
  9. REMODULIN [Suspect]
     Active Substance: TREPROSTINIL
     Dosage: 0.05825 ?G/KG, CONTINUING
     Route: 058
  10. REMODULIN [Suspect]
     Active Substance: TREPROSTINIL
     Dosage: 0.008 ?G/KG, CONTINUING
     Route: 058
  11. LETAIRIS [Suspect]
     Active Substance: AMBRISENTAN
     Indication: PRODUCT USED FOR UNKNOWN INDICATION
     Dosage: 10 MG, QD
     Dates: start: 20140113

REACTIONS (26)
  - Abdominal pain [Not Recovered/Not Resolved]
  - Infusion site pain [Unknown]
  - Dyspnoea [Unknown]
  - Influenza like illness [Unknown]
  - Malaise [Unknown]
  - Nasal congestion [Unknown]
  - Dermatitis contact [Unknown]
  - Oedema [Unknown]
  - Weight increased [Unknown]
  - Pain [Unknown]
  - Infusion site induration [Unknown]
  - Headache [Unknown]
  - Nausea [Not Recovered/Not Resolved]
  - Diarrhoea [Not Recovered/Not Resolved]
  - Infusion site pruritus [Unknown]
  - Injection site discharge [Unknown]
  - Chills [Unknown]
  - Device dislocation [Unknown]
  - Abdominal distension [Unknown]
  - Drug dose omission [Unknown]
  - Insomnia [Unknown]
  - Viral infection [Unknown]
  - Infusion site oedema [Unknown]
  - Infusion site erythema [Unknown]
  - Infusion site reaction [Unknown]
  - Immune system disorder [Unknown]

NARRATIVE: CASE EVENT DATE: 2014
